FAERS Safety Report 20321986 (Version 3)
Quarter: 2022Q3

REPORT INFORMATION
  Report Type: Spontaneous
  Country: FR (occurrence: FR)
  Receive Date: 20220111
  Receipt Date: 20220803
  Transmission Date: 20221026
  Serious: Yes (Death, Hospitalization, Other)
  Sender: FDA-Public Use
  Company Number: FR-AMGEN-FRASP2022003317

PATIENT

DRUGS (1)
  1. ROMIPLOSTIM [Suspect]
     Active Substance: ROMIPLOSTIM
     Indication: Immune thrombocytopenia
     Dosage: UNK
     Route: 065

REACTIONS (11)
  - Death [Fatal]
  - Septic shock [Fatal]
  - Pneumonia aspiration [Fatal]
  - Diaphragmatic rupture [Fatal]
  - Immune thrombocytopenia [Unknown]
  - Splenic vein thrombosis [Unknown]
  - Portal vein thrombosis [Unknown]
  - Embolism venous [Unknown]
  - Infection [Unknown]
  - Therapy non-responder [Unknown]
  - Arterial thrombosis [Unknown]
